FAERS Safety Report 9483273 (Version 2)
Quarter: 2013Q3

REPORT INFORMATION
  Report Type: Spontaneous
  Country: US (occurrence: US)
  Receive Date: 20130828
  Receipt Date: 20130828
  Transmission Date: 20140515
  Serious: Yes (Hospitalization)
  Sender: FDA-Public Use
  Company Number: US-AMGEN-KDL245173

PATIENT
  Age: 48 Year
  Sex: Female
  Weight: 81.7 kg

DRUGS (11)
  1. ENBREL [Suspect]
     Indication: RHEUMATOID ARTHRITIS
     Dosage: 50 MG, QWK
     Route: 058
     Dates: start: 20040401
  2. METHOTREXATE [Concomitant]
     Dosage: 15 MG, QWK
     Route: 048
     Dates: start: 20051220
  3. FLUOXETINE HYDROCHLORIDE [Concomitant]
     Dosage: 40 MG, UNK
     Dates: start: 20050102
  4. MODAFINIL [Concomitant]
     Dosage: 200 MG, UNK
     Dates: start: 2007
  5. CYCLOBENZAPRINE HYDROCHLORIDE [Concomitant]
     Dosage: 10 MG, PRN
     Dates: start: 20051220
  6. ZOLPIDEM TARTRATE [Concomitant]
     Dosage: 5 MG, PRN
     Dates: start: 20070919
  7. GABAPENTIN [Concomitant]
     Dosage: 200 MG, BID
     Dates: start: 20051220
  8. FOLIC ACID [Concomitant]
     Dosage: 1 MG, QD
     Dates: start: 20050102
  9. ATORVASTATIN CALCIUM [Concomitant]
     Dosage: UNK UNK, QD
     Dates: start: 20060927
  10. CYCLOSPORINE OPHTHALMIC EMULSION [Concomitant]
     Dosage: UNK UNK, QD
     Route: 047
  11. ETHINYL ESTRADIOL/NORGESTIMATE [Concomitant]
     Dosage: UNK UNK, QD
     Dates: start: 20051220

REACTIONS (9)
  - Staphylococcal infection [Unknown]
  - Vulvovaginitis [Unknown]
  - Postoperative fever [Recovered/Resolved]
  - Rheumatoid arthritis [Unknown]
  - Somnolence [Unknown]
  - Nodule [Unknown]
  - Feeling hot [Unknown]
  - Tremor [Unknown]
  - Fatigue [Unknown]
